FAERS Safety Report 10140798 (Version 2)
Quarter: 2014Q2

REPORT INFORMATION
  Report Type: Spontaneous
  Country: JP (occurrence: JP)
  Receive Date: 20140429
  Receipt Date: 20140506
  Transmission Date: 20141212
  Serious: Yes (Death)
  Sender: FDA-Public Use
  Company Number: JP-JNJFOC-20140415612

PATIENT
  Age: 51 Year
  Sex: Female

DRUGS (10)
  1. XEPLION [Suspect]
     Indication: SCHIZOPHRENIA
     Route: 030
     Dates: start: 20140314, end: 20140314
  2. XEPLION [Suspect]
     Indication: SCHIZOPHRENIA
     Route: 030
     Dates: start: 20140214, end: 20140214
  3. XEPLION [Suspect]
     Indication: SCHIZOPHRENIA
     Route: 030
     Dates: start: 20140117, end: 20140117
  4. XEPLION [Suspect]
     Indication: SCHIZOPHRENIA
     Route: 030
     Dates: start: 20131220, end: 20131220
  5. XEPLION [Suspect]
     Indication: SCHIZOPHRENIA
     Route: 030
     Dates: start: 20131122, end: 20131122
  6. RISPERDAL [Suspect]
     Indication: SCHIZOPHRENIA
     Route: 048
     Dates: start: 20110111
  7. WYPAX [Concomitant]
     Indication: ANXIETY
     Route: 048
     Dates: start: 20110111
  8. AKINETON [Concomitant]
     Indication: PRODUCT USED FOR UNKNOWN INDICATION
     Route: 065
  9. DEPAKENE [Concomitant]
     Indication: PRODUCT USED FOR UNKNOWN INDICATION
     Route: 048
  10. ROHYPNOL [Concomitant]
     Indication: INSOMNIA
     Route: 065
     Dates: start: 20110111

REACTIONS (1)
  - Completed suicide [Fatal]
